FAERS Safety Report 6905548-3 (Version None)
Quarter: 2010Q3

REPORT INFORMATION
  Report Type: 
  Country: None (occurrence: None)
  Receive Date: 20100804
  Receipt Date: 20100723
  Transmission Date: 20110219
  Serious: Yes (Other)
  Sender: FDA-Public Use
  Company Number: US-PFIZER INC-2010092712

PATIENT
  Sex: Female
  Weight: 51.701 kg

DRUGS (1)
  1. ZITHROMAX [Suspect]
     Indication: BRONCHITIS
     Dosage: UNK MG, UNK
     Route: 048
     Dates: start: 20100621, end: 20100601

REACTIONS (4)
  - AGEUSIA [None]
  - ANOSMIA [None]
  - EATING DISORDER [None]
  - MENTAL IMPAIRMENT [None]
